FAERS Safety Report 18403589 (Version 1)
Quarter: 2020Q4

REPORT INFORMATION
  Report Type: Spontaneous
  Country: US (occurrence: US)
  Receive Date: 20201019
  Receipt Date: 20201019
  Transmission Date: 20210114
  Serious: Yes (Hospitalization)
  Sender: FDA-Public Use
  Company Number: None

PATIENT
  Age: 6 Year
  Sex: Female
  Weight: 18.5 kg

DRUGS (1)
  1. CEFDINIR 125/5ML [Suspect]
     Active Substance: CEFDINIR
     Indication: URINARY TRACT INFECTION
     Dosage: ?          QUANTITY:5 ML;?
     Route: 048
     Dates: start: 20200709, end: 20201018

REACTIONS (10)
  - Screaming [None]
  - Neuralgia [None]
  - Dysphagia [None]
  - Serum sickness [None]
  - Hypersensitivity vasculitis [None]
  - Oropharyngeal pain [None]
  - Adverse drug reaction [None]
  - Sensitisation [None]
  - Gait inability [None]
  - Pain [None]

NARRATIVE: CASE EVENT DATE: 20200718
